FAERS Safety Report 9632179 (Version 3)
Quarter: 2013Q4

REPORT INFORMATION
  Report Type: Spontaneous
  Country: JP (occurrence: JP)
  Receive Date: 20131018
  Receipt Date: 20131121
  Transmission Date: 20140711
  Serious: Yes (Death)
  Sender: FDA-Public Use
  Company Number: JP-OTSUKA-JP-2013-14449

PATIENT
  Age: 40 Year
  Sex: Female

DRUGS (4)
  1. SAMSCA [Suspect]
     Indication: CIRRHOSIS ALCOHOLIC
     Dosage: 15 MG MILLIGRAM(S), DAILY DOSE
     Route: 048
     Dates: start: 20130119, end: 20130130
  2. SAMSCA [Suspect]
     Indication: ASCITES
  3. LASIX [Concomitant]
     Route: 042
  4. FLUITRAN [Concomitant]
     Route: 048

REACTIONS (2)
  - Hepatic cirrhosis [Fatal]
  - Hypernatraemia [Recovered/Resolved]
